FAERS Safety Report 4584331-0 (Version None)
Quarter: 2005Q1

REPORT INFORMATION
  Report Type: 
  Country: None (occurrence: None)
  Receive Date: 20050216
  Receipt Date: 20050208
  Transmission Date: 20050727
  Serious: Yes (Death, Other)
  Sender: FDA-Public Use
  Company Number: PHBS2005TR02158

PATIENT
  Age: 16 Year
  Sex: Female

DRUGS (5)
  1. BUSULFAN [Concomitant]
  2. CYCLOPHOSPHAMIDE [Concomitant]
  3. CYTARABINE [Concomitant]
  4. METHOTREXATE [Concomitant]
  5. CYCLOSPORINE [Suspect]
     Indication: BONE MARROW TRANSPLANT
     Route: 065

REACTIONS (12)
  - BLOOD MAGNESIUM DECREASED [None]
  - BLOOD SODIUM DECREASED [None]
  - CENTRAL PONTINE MYELINOLYSIS [None]
  - DYSPHAGIA [None]
  - GASTROINTESTINAL HAEMORRHAGE [None]
  - GRAND MAL CONVULSION [None]
  - HEMIPARESIS [None]
  - INAPPROPRIATE ANTIDIURETIC HORMONE SECRETION [None]
  - JUGULAR VEIN THROMBOSIS [None]
  - MUCOSAL INFLAMMATION [None]
  - NEUROTOXICITY [None]
  - VISION BLURRED [None]
